FAERS Safety Report 17858581 (Version 2)
Quarter: 2020Q2

REPORT INFORMATION
  Report Type: Report from Study
  Country: None (occurrence: US)
  Receive Date: 20200604
  Receipt Date: 20200605
  Transmission Date: 20200714
  Serious: No
  Sender: FDA-Public Use
  Company Number: US-US WORLDMEDS, LLC-USW201911-002097

PATIENT
  Age: 63 Year
  Sex: Male
  Weight: 91.62 kg

DRUGS (10)
  1. VALIUM [Concomitant]
     Active Substance: DIAZEPAM
  2. SIMVASTATIN. [Concomitant]
     Active Substance: SIMVASTATIN
  3. CARBIDOPA/LEVODOPA [Concomitant]
     Active Substance: CARBIDOPA\LEVODOPA
  4. SINEMET [Concomitant]
     Active Substance: CARBIDOPA\LEVODOPA
  5. SINEMET [Concomitant]
     Active Substance: CARBIDOPA\LEVODOPA
  6. TAMSULOSIN [Concomitant]
     Active Substance: TAMSULOSIN
  7. GABAPENTIN. [Concomitant]
     Active Substance: GABAPENTIN
  8. RASAGILINE. [Concomitant]
     Active Substance: RASAGILINE
  9. APOKYN [Suspect]
     Active Substance: APOMORPHINE HYDROCHLORIDE
     Indication: PARKINSON^S DISEASE
     Route: 058
     Dates: start: 20191029
  10. VENLAFAXINE HCL [Concomitant]
     Active Substance: VENLAFAXINE HYDROCHLORIDE

REACTIONS (12)
  - Feeling abnormal [Recovered/Resolved]
  - Fall [Unknown]
  - Muscle spasms [Recovered/Resolved]
  - Crying [Recovered/Resolved]
  - Tremor [Recovered/Resolved]
  - Muscle tightness [Recovered/Resolved]
  - Dyskinesia [Recovered/Resolved]
  - Dizziness [Recovered/Resolved]
  - Musculoskeletal stiffness [Recovered/Resolved]
  - Therapeutic response shortened [Unknown]
  - Lip swelling [Recovered/Resolved]
  - Somnolence [Recovered/Resolved]

NARRATIVE: CASE EVENT DATE: 20191029
